FAERS Safety Report 8446479-X (Version None)
Quarter: 2012Q2

REPORT INFORMATION
  Report Type: 
  Country: None (occurrence: None)
  Receive Date: 20120618
  Receipt Date: 20120411
  Transmission Date: 20120825
  Serious: Yes (Other)
  Sender: FDA-Public Use
  Company Number: US-TEVA-333086USA

PATIENT
  Sex: Female

DRUGS (1)
  1. ACTIQ [Suspect]
     Indication: CANCER PAIN
     Route: 002

REACTIONS (3)
  - DRUG INEFFECTIVE [None]
  - CONVULSION [None]
  - PAIN [None]
